FAERS Safety Report 14553799 (Version 12)
Quarter: 2019Q4

REPORT INFORMATION
  Report Type: Spontaneous
  Country: US (occurrence: US)
  Receive Date: 20180220
  Receipt Date: 20191128
  Transmission Date: 20200122
  Serious: Yes (Hospitalization, Other)
  Sender: FDA-Public Use
  Company Number: US-PFIZER INC-2018069670

PATIENT
  Age: 61 Year
  Sex: Male
  Weight: 104.3 kg

DRUGS (13)
  1. SUTENT [Suspect]
     Active Substance: SUNITINIB MALATE
     Indication: RENAL CANCER STAGE IV
     Dosage: 50 MG, CYCLIC (28 DAYS ON/14 DAYS OFF)
     Dates: start: 20180124, end: 20180418
  2. SUTENT [Suspect]
     Active Substance: SUNITINIB MALATE
     Dosage: 37.5 MG, CYCLIC (QD (ONCE A DAY) ON DAY 1-28 OF 42 DAY CYCLE)
     Route: 048
  3. LOTREL [Concomitant]
     Active Substance: AMLODIPINE BESYLATE\BENAZEPRIL HYDROCHLORIDE
     Dosage: UNK
  4. CRESTOR [Concomitant]
     Active Substance: ROSUVASTATIN CALCIUM
     Dosage: UNK
  5. CALCIUM [Concomitant]
     Active Substance: CALCIUM
     Dosage: UNK
  6. TRAMADOL. [Concomitant]
     Active Substance: TRAMADOL
     Dosage: UNK
  7. SUTENT [Suspect]
     Active Substance: SUNITINIB MALATE
     Dosage: 37.5 MG, 1X/DAY
     Route: 048
  8. GLIPIZIDE. [Concomitant]
     Active Substance: GLIPIZIDE
     Dosage: UNK
  9. FLONASE [Concomitant]
     Active Substance: FLUTICASONE PROPIONATE
     Dosage: UNK
  10. SUTENT [Suspect]
     Active Substance: SUNITINIB MALATE
     Dosage: 50 MG, 1X/DAY
     Route: 048
  11. FLOMAX [Concomitant]
     Active Substance: TAMSULOSIN HYDROCHLORIDE
     Dosage: UNK
  12. SUTENT [Suspect]
     Active Substance: SUNITINIB MALATE
     Dosage: 50 MG, CYCLIC (28 DAYS ON AND 14 DAYS OFF)
     Dates: start: 20180423
  13. XGEVA [Concomitant]
     Active Substance: DENOSUMAB
     Dosage: UNK, MONTHLY

REACTIONS (17)
  - Hypertension [Recovering/Resolving]
  - Haemorrhage [Recovering/Resolving]
  - Nephrolithiasis [Unknown]
  - Neoplasm progression [Unknown]
  - Abdominal pain lower [Recovered/Resolved]
  - Epistaxis [Unknown]
  - Dysgeusia [Unknown]
  - Musculoskeletal chest pain [Unknown]
  - Flatulence [Unknown]
  - Alopecia [Unknown]
  - Back pain [Unknown]
  - Ageusia [Unknown]
  - Insomnia [Unknown]
  - Prostatic specific antigen increased [Unknown]
  - Diarrhoea [Recovered/Resolved]
  - Hair colour changes [Unknown]
  - Muscle spasms [Unknown]

NARRATIVE: CASE EVENT DATE: 2018
